FAERS Safety Report 7518332-7 (Version None)
Quarter: 2011Q2

REPORT INFORMATION
  Report Type: 
  Country: None (occurrence: None)
  Receive Date: 20110602
  Receipt Date: 20090411
  Transmission Date: 20111010
  Serious: Yes (Death, Other)
  Sender: FDA-Public Use
  Company Number: US-BAYER-200917824NA

PATIENT
  Age: 72 Year
  Sex: Female
  Weight: 75 kg

DRUGS (32)
  1. FERROUS SULFATE TAB [Concomitant]
     Dosage: 325 MG, BID
     Route: 048
  2. FENTANYL [Concomitant]
     Dosage: UNK
     Dates: start: 20040502, end: 20040502
  3. LEVOPHED [Concomitant]
     Dosage: UNK
     Route: 042
     Dates: start: 20040502, end: 20040502
  4. CAPTOPRIL [Concomitant]
     Dosage: 50 MG, BID
     Route: 048
  5. REOPRO [Concomitant]
     Dosage: 19ML/HR, INFUSION
     Route: 042
     Dates: start: 20040502, end: 20040502
  6. PRILOSEC [Concomitant]
     Dosage: 20 MG, QD
     Route: 048
  7. PHENERGAN HCL [Concomitant]
     Dosage: UNK UNK, PRN
     Route: 048
  8. FENTANYL [Concomitant]
     Dosage: 50 ?G, UNK
     Route: 042
     Dates: start: 20040502, end: 20040502
  9. EPINEPHRINE [Concomitant]
     Dosage: UNK
     Route: 042
     Dates: start: 20040502, end: 20040502
  10. RED BLOOD CELLS [Concomitant]
     Dosage: 6 U, UNK
     Route: 042
     Dates: start: 20040502
  11. CRYOPRECIPITATES [Concomitant]
     Dosage: 10 U, UNK
     Route: 042
     Dates: start: 20040502
  12. TRASYLOL [Suspect]
     Indication: CORONARY ARTERY BYPASS
     Dosage: 50CC/HOUR, INFUSION
     Route: 042
     Dates: start: 20040502, end: 20040502
  13. MANNITOL [Concomitant]
     Dosage: UNK
     Route: 042
     Dates: start: 20040502, end: 20040502
  14. VERSED [Concomitant]
     Dosage: UNK
     Route: 042
     Dates: start: 20040502, end: 20040502
  15. AMIDATE [Concomitant]
     Dosage: UNK
     Route: 042
     Dates: start: 20040502, end: 20040502
  16. LOVENOX [Concomitant]
     Dosage: 60 MG, BID
     Route: 058
     Dates: start: 20040501
  17. VANCOMYCIN [Concomitant]
     Dosage: 1 G, UNK
     Route: 042
     Dates: start: 20040501
  18. PAVULON [Concomitant]
     Dosage: UNK
     Dates: start: 20040502, end: 20040502
  19. PLASMA [Concomitant]
     Dosage: 10 U,
     Route: 042
  20. PLATELETS [Concomitant]
     Dosage: 20 U, UNK
     Route: 042
     Dates: start: 20040502
  21. LASIX [Concomitant]
     Dosage: 40 MG, BID
     Route: 048
     Dates: start: 20040501
  22. HEPARIN [Concomitant]
     Dosage: 2000 U, UNK
     Route: 042
     Dates: start: 20040502, end: 20040502
  23. VERSED [Concomitant]
     Dosage: 2 MG, UNK
     Route: 042
     Dates: start: 20040502, end: 20040502
  24. DILTIAZEM [Concomitant]
     Dosage: 300 MG, QD
     Route: 048
  25. BENADRYL [Concomitant]
     Dosage: 50 MG, UNK
     Dates: start: 20040502, end: 20040502
  26. TRASYLOL [Suspect]
     Indication: VENTRICULAR SEPTAL DEFECT REPAIR
  27. CLONIDINE [Concomitant]
     Dosage: 0.5 MG, BID
     Route: 048
  28. NITROGLYCERIN [Concomitant]
     Dosage: 10 ?G/H, UNK
     Route: 042
     Dates: start: 20040501
  29. DEXAMETHASONE [Concomitant]
     Dosage: 12 MG, UNK
     Route: 042
     Dates: start: 20040502, end: 20040502
  30. TAGAMET [Concomitant]
     Dosage: 300 MG, UNK
     Route: 042
     Dates: start: 20040502, end: 20040502
  31. CALCIUM CHLORIDE [Concomitant]
     Dosage: UNK
     Dates: start: 20040502, end: 20040502
  32. RED BLOOD CELLS [Concomitant]
     Dosage: 10 U,
     Route: 042
     Dates: start: 20040502

REACTIONS (10)
  - PAIN [None]
  - DEPRESSION [None]
  - UNEVALUABLE EVENT [None]
  - FEAR [None]
  - INJURY [None]
  - ANHEDONIA [None]
  - DEATH [None]
  - ANXIETY [None]
  - RENAL FAILURE [None]
  - CARDIOGENIC SHOCK [None]
